FAERS Safety Report 6214246-3 (Version None)
Quarter: 2009Q2

REPORT INFORMATION
  Report Type: 
  Country: None (occurrence: None)
  Receive Date: 20090604
  Receipt Date: 20090528
  Transmission Date: 20091009
  Serious: Yes (Hospitalization)
  Sender: FDA-Public Use
  Company Number: PHHY2009JP13502

PATIENT
  Age: 67 Year
  Sex: Female
  Weight: 42 kg

DRUGS (4)
  1. ICL670A ICL+DISTAB [Suspect]
     Indication: IRON OVERLOAD
     Dosage: 1000 MG/DAY
     Route: 048
     Dates: start: 20081204
  2. PRIMOBOLAN [Concomitant]
     Dosage: 5 MG, UNK
     Route: 048
     Dates: start: 20081204
  3. LIPITOR [Concomitant]
     Dosage: 10 MG, UNK
     Route: 048
     Dates: start: 20081204, end: 20090313
  4. LANTUS [Concomitant]
     Dosage: UNK
     Dates: start: 20090115, end: 20090402

REACTIONS (1)
  - DIABETES MELLITUS [None]
